FAERS Safety Report 9792485 (Version 1)
Quarter: 2014Q1

REPORT INFORMATION
  Report Type: Spontaneous
  Country: US (occurrence: US)
  Receive Date: 20140102
  Receipt Date: 20140102
  Transmission Date: 20141002
  Serious: No
  Sender: FDA-Public Use
  Company Number: US-BIOGENIDEC-2013BI124397

PATIENT
  Sex: 0

DRUGS (1)
  1. TECFIDERA [Suspect]
     Indication: PRODUCT USED FOR UNKNOWN INDICATION
     Route: 048

REACTIONS (6)
  - Muscle contractions involuntary [Unknown]
  - Gait disturbance [Unknown]
  - Rhinorrhoea [Unknown]
  - Depressed mood [Unknown]
  - Flushing [Unknown]
  - Pruritus [Unknown]
